FAERS Safety Report 4791798-1 (Version None)
Quarter: 2005Q4

REPORT INFORMATION
  Report Type: 
  Country: None (occurrence: None)
  Receive Date: 20051007
  Receipt Date: 20050930
  Transmission Date: 20060501
  Serious: Yes (Hospitalization)
  Sender: FDA-Public Use
  Company Number: FR-SANOFI-SYNTHELABO-A02200502567

PATIENT
  Age: 77 Year
  Sex: Female

DRUGS (5)
  1. PLAQUENIL [Suspect]
     Indication: SYSTEMIC LUPUS ERYTHEMATOSUS
     Dosage: UNK
     Route: 048
  2. LANZOR [Suspect]
     Indication: DRUG USE FOR UNKNOWN INDICATION
     Route: 048
     Dates: start: 20050101
  3. DIOSMIN [Suspect]
     Indication: DRUG USE FOR UNKNOWN INDICATION
     Dosage: UNK
     Route: 048
     Dates: start: 20050601
  4. FUROSEMIDE [Concomitant]
     Dosage: UNK
     Route: 065
  5. SURMONTIL [Concomitant]
     Dosage: UNK
     Route: 065

REACTIONS (1)
  - COLITIS [None]
